FAERS Safety Report 19610279 (Version 7)
Quarter: 2023Q2

REPORT INFORMATION
  Report Type: Spontaneous
  Country: US (occurrence: US)
  Receive Date: 20210726
  Receipt Date: 20230417
  Transmission Date: 20230722
  Serious: Yes (Hospitalization, Other)
  Sender: FDA-Public Use
  Company Number: US-PFIZER INC-2021494264

PATIENT
  Age: 63 Year
  Sex: Female

DRUGS (1)
  1. XELJANZ XR [Suspect]
     Active Substance: TOFACITINIB CITRATE
     Dosage: 11 MG, 1X/DAY
     Route: 048

REACTIONS (12)
  - Pneumonia [Unknown]
  - Renal failure [Unknown]
  - COVID-19 [Recovered/Resolved]
  - Rheumatoid arthritis [Unknown]
  - Headache [Unknown]
  - Insomnia [Unknown]
  - Pain [Unknown]
  - Condition aggravated [Unknown]
  - Peripheral swelling [Unknown]
  - Condition aggravated [Unknown]
  - Pyrexia [Unknown]
  - Oropharyngeal pain [Unknown]

NARRATIVE: CASE EVENT DATE: 20230312
